FAERS Safety Report 5127557-X (Version None)
Quarter: 2006Q4

REPORT INFORMATION
  Report Type: 
  Country: None (occurrence: None)
  Receive Date: 20061011
  Receipt Date: 20060925
  Transmission Date: 20070319
  Serious: Yes (Disabling)
  Sender: FDA-Public Use
  Company Number: ACO_0272_2006

PATIENT
  Age: 54 Year
  Sex: Female
  Weight: 60 kg

DRUGS (5)
  1. TIZANIDINE HCL [Suspect]
     Indication: HEMIPARESIS
     Dosage: 8 MG QDAY; PO
     Route: 048
     Dates: start: 20060601, end: 20060901
  2. TIZANIDINE HCL [Suspect]
     Indication: HEMIPARESIS
     Dosage: 6 MG QDAY; PO
     Route: 048
     Dates: start: 20060901
  3. CARDIOPIRIN [Concomitant]
  4. CAVINTON [Concomitant]
  5. ENALAPRIL MALEATE [Concomitant]

REACTIONS (4)
  - ABASIA [None]
  - MUSCLE SPASMS [None]
  - MUSCULAR WEAKNESS [None]
  - MYALGIA [None]
